FAERS Safety Report 21751807 (Version 1)
Quarter: 2022Q4

REPORT INFORMATION
  Report Type: Report from Study
  Country: BR (occurrence: BR)
  Receive Date: 20221220
  Receipt Date: 20221220
  Transmission Date: 20230113
  Serious: Yes (Other)
  Sender: FDA-Public Use
  Company Number: BR-JNJFOC-20221228440

PATIENT
  Age: 6 Decade
  Sex: Female
  Weight: 55 kg

DRUGS (1)
  1. REMICADE [Suspect]
     Active Substance: INFLIXIMAB
     Indication: Colitis
     Dosage: 3 VIALS-BOTTLES
     Route: 041
     Dates: start: 20190212

REACTIONS (3)
  - Leiomyoma [Unknown]
  - Aphthous ulcer [Not Recovered/Not Resolved]
  - Candida infection [Not Recovered/Not Resolved]
